FAERS Safety Report 4508876-4 (Version None)
Quarter: 2004Q4

REPORT INFORMATION
  Report Type: 
  Country: None (occurrence: None)
  Receive Date: 20041123
  Receipt Date: 20010831
  Transmission Date: 20050328
  Serious: Yes (Other)
  Sender: FDA-Public Use
  Company Number: PHBS2001BR13484

PATIENT
  Age: 48 Year
  Sex: Male
  Weight: 92 kg

DRUGS (4)
  1. STARLIX [Suspect]
     Dosage: 120 MG/DAY
  2. BENAZEPRIL HCL [Concomitant]
  3. SOTALOL HCL [Concomitant]
  4. ATORVASTATIN [Concomitant]

REACTIONS (3)
  - COORDINATION ABNORMAL [None]
  - DYSARTHRIA [None]
  - MYALGIA [None]
